FAERS Safety Report 15778951 (Version 1)
Quarter: 2019Q1

REPORT INFORMATION
  Report Type: Spontaneous
  Country: CN (occurrence: CN)
  Receive Date: 20190101
  Receipt Date: 20190101
  Transmission Date: 20190417
  Serious: Yes (Hospitalization)
  Sender: FDA-Public Use
  Company Number: CN-ROCHE-2237590

PATIENT
  Age: 52 Year
  Sex: Female
  Weight: 65 kg

DRUGS (2)
  1. XELODA [Suspect]
     Active Substance: CAPECITABINE
     Indication: METASTASES TO BONE
     Dosage: 3 TABLETS
     Route: 048
     Dates: start: 20180723, end: 20180726
  2. DEXAMETHASONE. [Concomitant]
     Active Substance: DEXAMETHASONE
     Indication: ANTIALLERGIC THERAPY
     Route: 041

REACTIONS (4)
  - Erythema [Recovered/Resolved]
  - Pain [Recovering/Resolving]
  - Swelling [Recovered/Resolved]
  - Paralysis [Recovering/Resolving]

NARRATIVE: CASE EVENT DATE: 20180725
